FAERS Safety Report 8522313-4 (Version None)
Quarter: 2012Q3

REPORT INFORMATION
  Report Type: 
  Country: None (occurrence: None)
  Receive Date: 20120719
  Receipt Date: 20120711
  Transmission Date: 20120928
  Serious: Yes (Hospitalization, Other)
  Sender: FDA-Public Use
  Company Number: US-ELI_LILLY_AND_COMPANY-US201207003709

PATIENT
  Sex: Female

DRUGS (9)
  1. SIMVASTATIN [Concomitant]
     Dosage: UNK
  2. THIAZIDE [Concomitant]
     Dosage: UNK
  3. FORTEO [Suspect]
     Indication: OSTEOPOROSIS
     Dosage: 20 UG, QD
     Dates: start: 20110911
  4. LISINOPRIL [Concomitant]
     Dosage: UNK
  5. TYLENOL                                 /SCH/ [Concomitant]
     Indication: PAIN
     Dosage: UNK
  6. CALCIUM [Concomitant]
     Dosage: UNK
  7. VITAMIN TAB [Concomitant]
     Dosage: UNK, QD
  8. TRAMADOL HYDROCHLORIDE [Concomitant]
     Indication: PAIN
     Dosage: UNK
  9. FORTEO [Suspect]
     Dosage: 20 UG, QD
     Dates: start: 20110911

REACTIONS (4)
  - PERONEAL NERVE PALSY [None]
  - PAIN [None]
  - PERONEAL NERVE PALSY POSTOPERATIVE [None]
  - KNEE ARTHROPLASTY [None]
